FAERS Safety Report 8988942 (Version 1)
Quarter: 2012Q4

REPORT INFORMATION
  Report Type: 
  Country: SE (occurrence: SE)
  Receive Date: 20121227
  Receipt Date: 20121227
  Transmission Date: 20130627
  Serious: Yes (Other)
  Sender: FDA-Public Use
  Company Number: SE-ELI_LILLY_AND_COMPANY-SE201212005142

PATIENT
  Age: 70 Year
  Sex: Female
  Weight: 88.4 kg

DRUGS (10)
  1. BYDUREON [Suspect]
     Indication: TYPE 2 DIABETES MELLITUS
     Dosage: 2 mg, weekly (1/W)
     Dates: start: 20121015
  2. LEVAXIN [Concomitant]
     Indication: HYPERTHYROIDISM
     Dosage: 100 ug, qd
     Dates: start: 2006
  3. METFORMIN [Concomitant]
     Indication: TYPE 2 DIABETES MELLITUS
     Dosage: 1750 mg, qd
     Dates: start: 2010
  4. METOPROLOL [Concomitant]
     Indication: HYPERTONIA
     Dosage: 50 mg, qd
     Dates: start: 2010
  5. SIMVASTATIN [Concomitant]
     Indication: HYPERCHOLESTEROLAEMIA
     Dosage: 40 mg, qd
     Dates: start: 2010
  6. CYMBALTA [Concomitant]
     Dosage: 30 mg, unknown
     Dates: start: 2012
  7. OMEPRAZOL [Concomitant]
     Dosage: 20 mg, unknown
     Dates: start: 2012
  8. SIFROL [Concomitant]
     Dosage: 26 mg, unknown
     Dates: start: 2011
  9. TROMBYL [Concomitant]
     Dosage: 75 mg, unknown
     Dates: start: 2010
  10. ZOLPIDEM [Concomitant]
     Dosage: 5 mg, unknown
     Dates: start: 2011

REACTIONS (5)
  - Hiccups [Not Recovered/Not Resolved]
  - Malaise [Not Recovered/Not Resolved]
  - Headache [Not Recovered/Not Resolved]
  - Vomiting [Not Recovered/Not Resolved]
  - Dyspepsia [Not Recovered/Not Resolved]
